FAERS Safety Report 23717274 (Version 1)
Quarter: 2024Q2

REPORT INFORMATION
  Report Type: Spontaneous
  Country: US (occurrence: None)
  Receive Date: 20240408
  Receipt Date: 20240408
  Transmission Date: 20240716
  Serious: Yes (Hospitalization, Other)
  Sender: FDA-Public Use
  Company Number: US-ROCHE-3537179

PATIENT
  Sex: Female
  Weight: 63.56 kg

DRUGS (4)
  1. RITUXAN [Suspect]
     Active Substance: RITUXIMAB
     Indication: Thrombotic thrombocytopenic purpura
     Route: 041
  2. RITUXAN [Suspect]
     Active Substance: RITUXIMAB
     Route: 041
     Dates: start: 20240304, end: 20240311
  3. ASPIRIN [Concomitant]
     Active Substance: ASPIRIN
     Indication: Thrombotic thrombocytopenic purpura
  4. PROTONIX [Concomitant]
     Active Substance: PANTOPRAZOLE SODIUM
     Route: 048

REACTIONS (16)
  - Thrombotic thrombocytopenic purpura [Recovered/Resolved]
  - Gastrointestinal disorder [Unknown]
  - Fatigue [Recovering/Resolving]
  - Cushing^s syndrome [Not Recovered/Not Resolved]
  - Heavy menstrual bleeding [Recovered/Resolved]
  - Fatigue [Unknown]
  - Off label use [Unknown]
  - Ovarian cyst [Unknown]
  - Menopause [Not Recovered/Not Resolved]
  - Nausea [Unknown]
  - Pain [Unknown]
  - Platelet count decreased [Unknown]
  - Haemoglobin decreased [Unknown]
  - Product dose omission issue [Unknown]
  - Feeling abnormal [Unknown]
  - Cholecystectomy [Unknown]

NARRATIVE: CASE EVENT DATE: 20240304
